FAERS Safety Report 6833887-3 (Version None)
Quarter: 2010Q3

REPORT INFORMATION
  Report Type: 
  Country: None (occurrence: None)
  Receive Date: 20100712
  Receipt Date: 20070411
  Transmission Date: 20110219
  Serious: No
  Sender: FDA-Public Use
  Company Number: US-PFIZER INC-2007028041

PATIENT
  Sex: Female
  Weight: 62.14 kg

DRUGS (5)
  1. CHANTIX [Suspect]
     Indication: SMOKING CESSATION THERAPY
     Dates: start: 20070319, end: 20070326
  2. GARLIC [Concomitant]
  3. ACETYLSALICYLIC ACID [Concomitant]
  4. LEVAQUIN [Concomitant]
  5. BIAXIN [Concomitant]

REACTIONS (1)
  - DIZZINESS [None]
